FAERS Safety Report 8565410-X (Version None)
Quarter: 2012Q3

REPORT INFORMATION
  Report Type: 
  Country: None (occurrence: None)
  Receive Date: 20120803
  Receipt Date: 20120801
  Transmission Date: 20120928
  Serious: No
  Sender: FDA-Public Use
  Company Number: VE-PFIZER INC-2012159519

PATIENT
  Age: 43 Year
  Sex: Female

DRUGS (1)
  1. ZOLOFT [Suspect]
     Indication: MENTAL DISORDER
     Dosage: 50 MG, 1X/DAY
     Route: 048
     Dates: start: 20120501, end: 20120724

REACTIONS (3)
  - OFF LABEL USE [None]
  - ABDOMINAL DISCOMFORT [None]
  - VISUAL IMPAIRMENT [None]
